FAERS Safety Report 20486410 (Version 2)
Quarter: 2022Q1

REPORT INFORMATION
  Report Type: Report from Study
  Country: US (occurrence: US)
  Receive Date: 20220217
  Receipt Date: 20220223
  Transmission Date: 20220423
  Serious: Yes (Hospitalization)
  Sender: FDA-Public Use
  Company Number: US-GLAXOSMITHKLINE-US2022GSK023632

PATIENT
  Age: 44 Year
  Sex: Female
  Weight: 91.9 kg

DRUGS (9)
  1. NIRAPARIB [Suspect]
     Active Substance: NIRAPARIB
     Indication: Fallopian tube cancer
     Dosage: 200 MG
     Route: 048
     Dates: end: 20220127
  2. NIRAPARIB [Suspect]
     Active Substance: NIRAPARIB
     Indication: Endometrial cancer recurrent
  3. NIRAPARIB [Suspect]
     Active Substance: NIRAPARIB
     Indication: Malignant peritoneal neoplasm
  4. NIRAPARIB [Suspect]
     Active Substance: NIRAPARIB
     Indication: Ovarian cancer recurrent
  5. COPANLISIB [Suspect]
     Active Substance: COPANLISIB
     Indication: Fallopian tube cancer
     Dosage: UNK
     Route: 042
  6. COPANLISIB [Suspect]
     Active Substance: COPANLISIB
     Indication: Endometrial cancer recurrent
     Dosage: 45 MG
     Route: 042
     Dates: start: 20220119, end: 20220119
  7. COPANLISIB [Suspect]
     Active Substance: COPANLISIB
     Indication: Malignant peritoneal neoplasm
  8. COPANLISIB [Suspect]
     Active Substance: COPANLISIB
     Indication: Ovarian cancer recurrent
  9. MAXIPIME [Suspect]
     Active Substance: CEFEPIME HYDROCHLORIDE
     Indication: Pyrexia
     Dosage: 2000 MG, TID
     Route: 042
     Dates: start: 20220130, end: 20220131

REACTIONS (1)
  - Rash maculo-papular [Recovered/Resolved]

NARRATIVE: CASE EVENT DATE: 20220130
